FAERS Safety Report 5021020-2 (Version None)
Quarter: 2006Q2

REPORT INFORMATION
  Report Type: 
  Country: None (occurrence: None)
  Receive Date: 20060602
  Receipt Date: 20060519
  Transmission Date: 20061013
  Serious: Yes (Hospitalization, Other)
  Sender: FDA-Public Use
  Company Number: 200613247BWH

PATIENT
  Age: 61 Year
  Sex: Male
  Weight: 110 kg

DRUGS (9)
  1. SORAFENIB [Suspect]
     Indication: NON-SMALL CELL LUNG CANCER
     Dosage: 400 MG, BID; ORAL
     Route: 048
     Dates: start: 20060425, end: 20060510
  2. ALEVE [Concomitant]
  3. AMBIEN [Concomitant]
  4. COMPAZINE [Concomitant]
  5. CASANTHRANOL W/DOCUSATE SODIUM [Concomitant]
  6. LACTULOSE [Concomitant]
  7. OXYCODONE HCL [Concomitant]
  8. PEPCID [Concomitant]
  9. TUMS [Concomitant]

REACTIONS (12)
  - ASCITES [None]
  - BLOOD ELECTROLYTES ABNORMAL [None]
  - DEHYDRATION [None]
  - DISEASE PROGRESSION [None]
  - DYSPNOEA [None]
  - ELECTROCARDIOGRAM QT CORRECTED INTERVAL PROLONGED [None]
  - HYPERKALAEMIA [None]
  - HYPONATRAEMIA [None]
  - HYPOTENSION [None]
  - PERITONITIS [None]
  - RENAL FAILURE [None]
  - TACHYCARDIA [None]
